FAERS Safety Report 4810853-0 (Version None)
Quarter: 2005Q4

REPORT INFORMATION
  Report Type: 
  Country: None (occurrence: None)
  Receive Date: 20051025
  Receipt Date: 20051014
  Transmission Date: 20060501
  Serious: Yes (Other)
  Sender: FDA-Public Use
  Company Number: TPA2005A01271

PATIENT
  Age: 44 Year
  Sex: Female
  Weight: 136.0791 kg

DRUGS (19)
  1. ACTOS [Suspect]
     Indication: DIABETES MELLITUS INSULIN-DEPENDENT
     Dosage: 30 MG, 1 IN 1 D, PER ORAL
     Route: 048
     Dates: start: 20050811
  2. ACCUPRIL [Concomitant]
  3. HUMULIN N [Concomitant]
  4. HUMULIN R [Concomitant]
  5. LIPITOR [Concomitant]
  6. KCL (POTASSIUM CHLORIDE) [Concomitant]
  7. LASIX [Concomitant]
  8. PREMARIN [Concomitant]
  9. ASPIRIN [Concomitant]
  10. COREG [Concomitant]
  11. MACRODANTIN [Concomitant]
  12. VITAMIN B12 (CYANOCOBALAMIN) INJECTION [Concomitant]
  13. DEPAKOTE [Concomitant]
  14. PERICOLACE (PERI-COLACE) [Concomitant]
  15. SUPER B COMPLEX (SUPER B) [Concomitant]
  16. ZANTAC [Concomitant]
  17. NAPROXEN [Concomitant]
  18. ALEVE (NAPROXEN SODIUM) (TABLETS) [Concomitant]
  19. ADVIL (IBUPROFEN) (TABLETS) [Concomitant]

REACTIONS (2)
  - DILATATION VENTRICULAR [None]
  - EJECTION FRACTION DECREASED [None]
